FAERS Safety Report 14345335 (Version 1)
Quarter: 2017Q4

REPORT INFORMATION
  Report Type: Spontaneous
  Country: US (occurrence: US)
  Receive Date: 20171230
  Receipt Date: 20171230
  Transmission Date: 20180321
  Serious: Yes (Other)
  Sender: FDA-Public Use
  Company Number: None

PATIENT
  Age: 47 Year
  Sex: Female

DRUGS (2)
  1. TEMOZOLOMIDE 140MG [Suspect]
     Active Substance: TEMOZOLOMIDE
     Indication: INTRA-UTERINE CONTRACEPTIVE DEVICE
     Dosage: 1 CAPSULE (140MG) DAILY BY MOUTH
     Route: 048
     Dates: start: 20171019, end: 20171213
  2. TEMOZOLOMIDE 140MG [Suspect]
     Active Substance: TEMOZOLOMIDE
     Indication: ILL-DEFINED DISORDER
     Dosage: 1 CAPSULE (140MG) DAILY BY MOUTH
     Route: 048
     Dates: start: 20171019, end: 20171213

REACTIONS (2)
  - Rash [None]
  - Therapy cessation [None]

NARRATIVE: CASE EVENT DATE: 20171213
